FAERS Safety Report 12762577 (Version 2)
Quarter: 2016Q4

REPORT INFORMATION
  Report Type: Spontaneous
  Country: US (occurrence: US)
  Receive Date: 20160920
  Receipt Date: 20161128
  Transmission Date: 20170207
  Serious: No
  Sender: FDA-Public Use
  Company Number: US-009507513-1609USA001626

PATIENT
  Sex: Male

DRUGS (1)
  1. FOLLISTIM AQ [Suspect]
     Active Substance: FOLLITROPIN
     Indication: DELAYED PUBERTY
     Dosage: UNK

REACTIONS (2)
  - Product use issue [Unknown]
  - No adverse event [Unknown]
